FAERS Safety Report 24393787 (Version 1)
Quarter: 2024Q4

REPORT INFORMATION
  Report Type: Spontaneous
  Country: US (occurrence: US)
  Receive Date: 20241003
  Receipt Date: 20241003
  Transmission Date: 20250115
  Serious: No
  Sender: BAUSCH AND LOMB
  Company Number: US-BAUSCHBL-2024BNL033959

PATIENT
  Age: 68 Year
  Sex: Male
  Weight: 88.45 kg

DRUGS (2)
  1. ERYTHROMYCIN [Suspect]
     Active Substance: ERYTHROMYCIN
     Indication: Burning sensation
     Dosage: QID
     Route: 047
     Dates: start: 2024, end: 2024
  2. ERYTHROMYCIN [Suspect]
     Active Substance: ERYTHROMYCIN
     Indication: Product use in unapproved indication

REACTIONS (3)
  - Foreign body sensation in eyes [Unknown]
  - Eye disorder [Recovering/Resolving]
  - Product use in unapproved indication [Unknown]

NARRATIVE: CASE EVENT DATE: 20240101
